FAERS Safety Report 5878021-1 (Version None)
Quarter: 2008Q3

REPORT INFORMATION
  Report Type: 
  Country: None (occurrence: None)
  Receive Date: 20080909
  Receipt Date: 20080909
  Transmission Date: 20090109
  Serious: Yes (Life-Threatening, Hospitalization, Disabling, Other)
  Sender: FDA-Public Use
  Company Number: None

PATIENT
  Sex: Female
  Weight: 68.0396 kg

DRUGS (1)
  1. BYETTA [Suspect]
     Indication: DIABETES MELLITUS
     Dosage: 10 MG BEFORE EACH MEAL SQ
     Route: 058
     Dates: start: 20060301, end: 20080501

REACTIONS (21)
  - ALOPECIA [None]
  - ANAEMIA [None]
  - ASTHENIA [None]
  - COMA [None]
  - COUGH [None]
  - DIARRHOEA [None]
  - DYSPHAGIA [None]
  - NAUSEA [None]
  - ORGAN FAILURE [None]
  - PANCREATITIS ACUTE [None]
  - PNEUMONIA [None]
  - POST PROCEDURAL COMPLICATION [None]
  - PULMONARY EMBOLISM [None]
  - RESPIRATORY FAILURE [None]
  - STAPHYLOCOCCAL INFECTION [None]
  - STRESS [None]
  - TRACHEAL DISORDER [None]
  - TRACHEAL STENOSIS [None]
  - WALKING AID USER [None]
  - WEIGHT DECREASED [None]
  - WHEELCHAIR USER [None]
